FAERS Safety Report 7161235-0 (Version None)
Quarter: 2010Q4

REPORT INFORMATION
  Report Type: 
  Country: None (occurrence: None)
  Receive Date: 20101201
  Receipt Date: 20101124
  Transmission Date: 20110411
  Serious: Yes (Hospitalization)
  Sender: FDA-Public Use
  Company Number: 2010SP061639

PATIENT
  Age: 78 Year
  Sex: Female

DRUGS (7)
  1. MIRTAZAPINE [Suspect]
     Indication: DEPRESSION
     Dosage: 15 MG;QD;PO, 15 MG;BID;PO, 15 MG;TID;PO
     Route: 048
     Dates: start: 20100818, end: 20100819
  2. MIRTAZAPINE [Suspect]
     Indication: DEPRESSION
     Dosage: 15 MG;QD;PO, 15 MG;BID;PO, 15 MG;TID;PO
     Route: 048
     Dates: start: 20100819, end: 20100906
  3. MIRTAZAPINE [Suspect]
     Indication: DEPRESSION
     Dosage: 15 MG;QD;PO, 15 MG;BID;PO, 15 MG;TID;PO
     Route: 048
     Dates: start: 20100906, end: 20101001
  4. MIRTAZAPINE [Suspect]
     Indication: DEPRESSION
     Dosage: 15 MG;QD;PO, 15 MG;BID;PO, 15 MG;TID;PO
     Route: 048
     Dates: start: 20101001
  5. PROZAC [Suspect]
     Indication: DEPRESSION
     Dosage: PO
     Route: 048
     Dates: start: 20100807, end: 20100817
  6. AMITRIPTYLINE HCL [Suspect]
     Indication: DEPRESSION
     Dosage: PO
     Route: 048
     Dates: start: 20100911, end: 20100913
  7. ANAFRANIL [Concomitant]

REACTIONS (4)
  - DRUG HALF-LIFE INCREASED [None]
  - DRUG RESISTANCE [None]
  - DYSKINESIA [None]
  - GAIT DISTURBANCE [None]
